FAERS Safety Report 8841317 (Version 1)
Quarter: 2012Q4

REPORT INFORMATION
  Report Type: 
  Country: US (occurrence: US)
  Receive Date: 20121015
  Receipt Date: 20121015
  Transmission Date: 20130627
  Serious: Yes (Other)
  Sender: FDA-Public Use
  Company Number: US-PFIZER INC-2012250590

PATIENT

DRUGS (1)
  1. SOMAVERT [Suspect]
     Dosage: 30 mg, daily
     Route: 058

REACTIONS (2)
  - Disease progression [Unknown]
  - Neoplasm [Unknown]
